FAERS Safety Report 8103823-0 (Version None)
Quarter: 2012Q1

REPORT INFORMATION
  Report Type: 
  Country: None (occurrence: None)
  Receive Date: 20120201
  Receipt Date: 20120126
  Transmission Date: 20120608
  Serious: Yes (Hospitalization, Other)
  Sender: FDA-Public Use
  Company Number: US-ACTELION-A-US2010-39662

PATIENT

DRUGS (4)
  1. COUMADIN [Concomitant]
  2. TADALAFIL [Concomitant]
  3. DIGOXIN [Concomitant]
  4. TRACLEER [Suspect]
     Indication: PULMONARY ARTERIAL HYPERTENSION
     Dosage: UNK
     Route: 048
     Dates: start: 20060524

REACTIONS (5)
  - ASTHMA [None]
  - DYSPNOEA [None]
  - SYNCOPE [None]
  - CARDIAC ABLATION [None]
  - ATRIAL FIBRILLATION [None]
